FAERS Safety Report 7535295-9 (Version None)
Quarter: 2011Q2

REPORT INFORMATION
  Report Type: 
  Country: None (occurrence: None)
  Receive Date: 20110609
  Receipt Date: 20071219
  Transmission Date: 20111010
  Serious: Yes (Other)
  Sender: FDA-Public Use
  Company Number: PHHY2007JP01018

PATIENT
  Sex: Male

DRUGS (6)
  1. DOXAZOSIN MESYLATE [Concomitant]
     Dosage: 2 MG/DAY
     Route: 048
     Dates: start: 20020109, end: 20050418
  2. LOCHOLEST [Concomitant]
     Dosage: 20 MG/DAY
     Route: 048
     Dates: start: 20030109
  3. LASIX [Concomitant]
     Dosage: 20 MG/DAY
     Route: 048
     Dates: start: 20030327
  4. CALBLOCK [Concomitant]
     Dosage: 8 MG/DAY
     Route: 048
     Dates: start: 20041014
  5. DIOVAN [Suspect]
     Indication: HYPERTENSION
     Dosage: 80 MG, QD
     Route: 048
     Dates: start: 20021127, end: 20050418
  6. BISOPROLOL FUMARATE [Concomitant]
     Dosage: 5 MG/DAY
     Route: 048
     Dates: start: 20020109, end: 20050418

REACTIONS (1)
  - CEREBRAL INFARCTION [None]
